FAERS Safety Report 4775108-1 (Version None)
Quarter: 2005Q3

REPORT INFORMATION
  Report Type: 
  Country: None (occurrence: None)
  Receive Date: 20050919
  Receipt Date: 20050906
  Transmission Date: 20060218
  Serious: Yes (Hospitalization)
  Sender: FDA-Public Use
  Company Number: WAES 0509USA00422

PATIENT
  Age: 60 Year
  Sex: Male
  Weight: 93.8946 kg

DRUGS (8)
  1. PRINIVIL [Suspect]
     Indication: CARDIOVASCULAR DISORDER
     Dosage: 2.5 MG/ DAILY/ PO
     Route: 048
  2. INJ BLINDED THERAPY UNK [Suspect]
     Indication: CARDIAC FAILURE
     Dosage: IV
     Route: 042
     Dates: start: 20050315, end: 20050628
  3. DEMADEX [Suspect]
     Indication: CARDIOVASCULAR DISORDER
     Dosage: 50 MG/ DAILY/ PO
     Route: 048
  4. ZAROXOLYN [Suspect]
     Indication: CARDIOVASCULAR DISORDER
     Dosage: 2.5 MG/ PRN/ PO
     Route: 048
  5. BETAPACE [Suspect]
     Indication: CARDIOVASCULAR DISORDER
     Dosage: 40 MG/ BID/ PO
     Route: 048
  6. K-DUR 10 [Concomitant]
  7. PRAVACHOL [Concomitant]
  8. ALLOPURINOL [Concomitant]

REACTIONS (13)
  - ALANINE AMINOTRANSFERASE INCREASED [None]
  - ASPARTATE AMINOTRANSFERASE INCREASED [None]
  - BLOOD ALKALINE PHOSPHATASE INCREASED [None]
  - BLOOD CREATININE INCREASED [None]
  - BLOOD GLUCOSE INCREASED [None]
  - BLOOD SODIUM DECREASED [None]
  - BLOOD UREA INCREASED [None]
  - CARDIAC FAILURE CONGESTIVE [None]
  - CONDITION AGGRAVATED [None]
  - HAEMATOCRIT DECREASED [None]
  - HAEMOGLOBIN DECREASED [None]
  - HYPOTENSION [None]
  - RESPIRATORY DISTRESS [None]
